FAERS Safety Report 6256844-7 (Version None)
Quarter: 2009Q3

REPORT INFORMATION
  Report Type: 
  Country: None (occurrence: None)
  Receive Date: 20090706
  Receipt Date: 20090623
  Transmission Date: 20100115
  Serious: Yes (Other)
  Sender: FDA-Public Use
  Company Number: PHEH2008US04165

PATIENT
  Sex: Female

DRUGS (2)
  1. AREDIA [Suspect]
  2. ZOMETA [Suspect]

REACTIONS (27)
  - ABDOMINAL HERNIA [None]
  - ANGER [None]
  - ANHEDONIA [None]
  - ANXIETY [None]
  - COSTOCHONDRITIS [None]
  - DEPRESSION [None]
  - DERMATITIS CONTACT [None]
  - DISABILITY [None]
  - DYSARTHRIA [None]
  - ERYTHEMA [None]
  - HAEMORRHOIDS [None]
  - HYPERCHOLESTEROLAEMIA [None]
  - HYPERLIPIDAEMIA [None]
  - HYPOAESTHESIA [None]
  - INJURY [None]
  - MEMORY IMPAIRMENT [None]
  - MUSCULAR WEAKNESS [None]
  - MUSCULOSKELETAL CHEST PAIN [None]
  - MUSCULOSKELETAL PAIN [None]
  - OEDEMA PERIPHERAL [None]
  - OSTEONECROSIS [None]
  - PAIN [None]
  - RASH [None]
  - SKIN LESION [None]
  - STAPHYLOCOCCAL SKIN INFECTION [None]
  - TREMOR [None]
  - VISION BLURRED [None]
